FAERS Safety Report 20565124 (Version 12)
Quarter: 2024Q4

REPORT INFORMATION
  Report Type: Spontaneous
  Country: US (occurrence: US)
  Receive Date: 20220308
  Receipt Date: 20241011
  Transmission Date: 20250115
  Serious: Yes (Hospitalization, Disabling, Other)
  Sender: ORGANON
  Company Number: US-ORGANON-O2203USA000421

PATIENT
  Weight: 81.179 kg

DRUGS (8)
  1. SINGULAIR [Suspect]
     Active Substance: MONTELUKAST SODIUM
     Indication: Asthma
     Dosage: 10 MILLIGRAM
     Route: 048
     Dates: start: 1998, end: 2009
  2. SINGULAIR [Suspect]
     Active Substance: MONTELUKAST SODIUM
     Dosage: UNK
     Route: 048
  3. SINGULAIR [Suspect]
     Active Substance: MONTELUKAST SODIUM
     Dosage: UNK
     Route: 048
  4. SINGULAIR [Suspect]
     Active Substance: MONTELUKAST SODIUM
     Dosage: UNK
     Route: 048
  5. ALLEGRA [Concomitant]
     Active Substance: FEXOFENADINE HYDROCHLORIDE
     Dosage: 180 MILLIGRAM, QD (TAKE ONE TABLET BY MOUTH)
     Route: 048
  6. AZSTARYS [Concomitant]
     Active Substance: DEXMETHYLPHENIDATE HYDROCHLORIDE\SERDEXMETHYLPHENIDATE CHLORIDE
     Dosage: 1 DOSAGE FORM, QD (ONE CAPSULE BY MOUTH DAILY)
     Route: 048
  7. TESTOSTERONE [Concomitant]
     Active Substance: TESTOSTERONE
     Dosage: 1 MILLILITER, EVERY 4 WEEKS (INJECT 1 ML INTO THE MUSCLE, EVERY 4 WEEKS)
     Route: 030
  8. VIIBRYD [Concomitant]
     Active Substance: VILAZODONE HYDROCHLORIDE
     Dosage: 1 TABLET (40 MG) BY MOUTH
     Route: 048

REACTIONS (35)
  - Intentional self-injury [Unknown]
  - Depression [Not Recovered/Not Resolved]
  - Suicidal ideation [Not Recovered/Not Resolved]
  - Neuropsychological symptoms [Not Recovered/Not Resolved]
  - Autism spectrum disorder [Unknown]
  - Anxiety [Unknown]
  - Drug abuse [Unknown]
  - Major depression [Not Recovered/Not Resolved]
  - Suicidal ideation [Unknown]
  - Hallucination [Unknown]
  - Anger [Unknown]
  - Aggression [Unknown]
  - Incorrect dose administered [Unknown]
  - Product prescribing issue [Unknown]
  - Depressed mood [Unknown]
  - Fatigue [Not Recovered/Not Resolved]
  - Insomnia [Unknown]
  - Decreased interest [Unknown]
  - Asthenia [Unknown]
  - Feelings of worthlessness [Unknown]
  - Anhedonia [Unknown]
  - Feeling abnormal [Unknown]
  - Depression [Not Recovered/Not Resolved]
  - Social problem [Unknown]
  - Impaired work ability [Unknown]
  - Negative thoughts [Unknown]
  - Hypersomnia [Unknown]
  - Affective disorder [Unknown]
  - Attention deficit hyperactivity disorder [Unknown]
  - Rosacea [Recovering/Resolving]
  - Tonsillitis [Unknown]
  - Gastrooesophageal reflux disease [Unknown]
  - Heavy menstrual bleeding [Unknown]
  - Nightmare [Unknown]
  - Generalised anxiety disorder [Unknown]

NARRATIVE: CASE EVENT DATE: 19980101
